FAERS Safety Report 10339352 (Version 1)
Quarter: 2014Q3

REPORT INFORMATION
  Report Type: Spontaneous
  Country: GB (occurrence: None)
  Receive Date: 20140721
  Receipt Date: 20140721
  Transmission Date: 20150326
  Serious: Yes (Death, Hospitalization)
  Sender: FDA-Public Use
  Company Number: AUR-APL-2014-07723

PATIENT
  Age: 58 Year
  Sex: Female

DRUGS (9)
  1. CO-AMOXICLAV [Suspect]
     Active Substance: AMOXICILLIN\CLAVULANIC ACID
     Indication: PRODUCT USED FOR UNKNOWN INDICATION
     Route: 048
     Dates: start: 20120613, end: 20120613
  2. TINZAPARIN SODIUM (TINZAPARIN SODIUM) [Concomitant]
  3. RITUXIMAB (RITUXIMAB) [Suspect]
     Active Substance: RITUXIMAB
     Indication: NON-HODGKIN^S LYMPHOMA
     Dosage: 990 MG, DAY 1 OF EACH 28 DAY CYCLE, INTRAVENOUS
     Route: 042
     Dates: start: 20120530, end: 20120530
  4. FLUCLOXACILLIN [Suspect]
     Active Substance: FLUCLOXACILLIN
     Indication: PERIPHERAL SWELLING
     Route: 048
     Dates: start: 20120530, end: 20120607
  5. FLUCLOXACILLIN (FLUCLOXACILLIN) [Suspect]
     Active Substance: FLUCLOXACILLIN
     Indication: PERIPHERAL SWELLING
     Route: 042
     Dates: start: 20120622, end: 20120624
  6. METOCLOPRAMIDE (METOCLOPRAMIDE) [Concomitant]
     Active Substance: METOCLOPRAMIDE
  7. AMITRIPTYLINE (AMITRIPTYLINE) [Concomitant]
     Active Substance: AMITRIPTYLINE
  8. MAGNESIUM OXIDE (MAGNESIUM OXIDE) TABLET [Concomitant]
  9. BENDAMUSTINE (BENDAMUSTINE) (BENDAMUSTINE) [Suspect]
     Active Substance: BENDAMUSTINE
     Indication: NON-HODGKIN^S LYMPHOMA
     Dosage: 225 MG, DAYS 1 AND 2 OF EACH 28 DAY CYCLE, INTRAVENOUS
     Route: 042
     Dates: start: 20120530, end: 20120531

REACTIONS (7)
  - Pyrexia [None]
  - Renal failure [None]
  - Diarrhoea [None]
  - Pain in extremity [None]
  - Malignant neoplasm progression [None]
  - Non-Hodgkin^s lymphoma [None]
  - Cellulitis [None]

NARRATIVE: CASE EVENT DATE: 20120617
